FAERS Safety Report 9712635 (Version 1)
Quarter: 2013Q4

REPORT INFORMATION
  Report Type: Spontaneous
  Country: US (occurrence: None)
  Receive Date: 20131125
  Receipt Date: 20131125
  Transmission Date: 20140711
  Serious: No
  Sender: FDA-Public Use
  Company Number: None

PATIENT
  Age: 70 Year
  Sex: Male
  Weight: 79.38 kg

DRUGS (4)
  1. TAMSULOSIN HCL [Suspect]
     Indication: URINARY RETENTION
     Dosage: CAPSULE, AT BEDTIME
     Route: 048
     Dates: start: 20131031, end: 20131104
  2. AVODART [Concomitant]
  3. VITAMIN D [Concomitant]
  4. LANSOPRAZOLE [Concomitant]

REACTIONS (1)
  - Abdominal pain [None]
